FAERS Safety Report 7103866-X (Version None)
Quarter: 2010Q4

REPORT INFORMATION
  Report Type: 
  Country: None (occurrence: None)
  Receive Date: 20101115
  Receipt Date: 20101101
  Transmission Date: 20110411
  Serious: Yes (Other)
  Sender: FDA-Public Use
  Company Number: PHHY2010US73812

PATIENT
  Age: 82 Year
  Sex: Male

DRUGS (3)
  1. AFINITOR [Suspect]
     Indication: METASTATIC RENAL CELL CARCINOMA
     Dosage: 10 MG, QD
     Route: 048
  2. AFINITOR [Suspect]
     Dosage: 7.5 MG, QD
     Route: 048
  3. AFINITOR [Suspect]
     Dosage: 5 MG, UNK
     Route: 048

REACTIONS (3)
  - MUCOSAL INFLAMMATION [None]
  - PNEUMONITIS [None]
  - PULMONARY TOXICITY [None]
